FAERS Safety Report 12453469 (Version 1)
Quarter: 2016Q2

REPORT INFORMATION
  Report Type: Report from Study
  Country: DE (occurrence: CO)
  Receive Date: 20160609
  Receipt Date: 20160609
  Transmission Date: 20160815
  Serious: Yes (Hospitalization, Other)
  Sender: FDA-Public Use
  Company Number: DE-ACTELION-A-NJ2016-137526

PATIENT
  Age: 40 Year
  Sex: Female

DRUGS (1)
  1. VENTAVIS [Suspect]
     Active Substance: ILOPROST
     Indication: PULMONARY ARTERIAL HYPERTENSION
     Dosage: 6 DF, QD
     Route: 055

REACTIONS (4)
  - Back pain [Not Recovered/Not Resolved]
  - Catheterisation cardiac [Unknown]
  - Chest pain [Not Recovered/Not Resolved]
  - Coronary artery disease [Unknown]

NARRATIVE: CASE EVENT DATE: 20160528
